FAERS Safety Report 6184897-3 (Version None)
Quarter: 2009Q2

REPORT INFORMATION
  Report Type: 
  Country: None (occurrence: None)
  Receive Date: 20090511
  Receipt Date: 20090430
  Transmission Date: 20091009
  Serious: Yes (Death)
  Sender: FDA-Public Use
  Company Number: DE-BAXTER-2009BH005399

PATIENT
  Age: 71 Year
  Sex: Male
  Weight: 72 kg

DRUGS (19)
  1. GAMMAGARD LIQUID [Suspect]
     Indication: CHRONIC LYMPHOCYTIC LEUKAEMIA
     Route: 042
     Dates: start: 20080714, end: 20080714
  2. GAMMAGARD LIQUID [Suspect]
     Route: 042
     Dates: start: 20080714, end: 20090402
  3. GAMMAGARD LIQUID [Suspect]
     Route: 042
     Dates: start: 20080908, end: 20080908
  4. GAMMAGARD LIQUID [Suspect]
     Route: 042
     Dates: start: 20080807, end: 20080807
  5. GAMMAGARD LIQUID [Suspect]
     Route: 042
     Dates: start: 20081006, end: 20081006
  6. GAMMAGARD LIQUID [Suspect]
     Route: 042
     Dates: start: 20080807, end: 20080807
  7. GAMMAGARD LIQUID [Suspect]
     Route: 042
     Dates: start: 20081106, end: 20081106
  8. GAMMAGARD LIQUID [Suspect]
     Route: 042
     Dates: start: 20081204, end: 20081204
  9. CORTICOSTEROIDS [Concomitant]
  10. ZOLPIDEM [Concomitant]
     Dates: start: 20080714, end: 20080908
  11. CYCLOPHOSPHAMIDE [Concomitant]
     Dates: start: 20080807, end: 20080908
  12. VINCRISTINE [Concomitant]
     Dates: start: 20080807, end: 20080908
  13. MESNA [Concomitant]
     Dates: start: 20080807, end: 20080908
  14. ONDANSETRON [Concomitant]
     Dates: start: 20080807, end: 20080908
  15. RANITIDINE [Concomitant]
     Dates: start: 20080807, end: 20080908
  16. PREDNISOLONE [Concomitant]
     Dates: start: 20080807, end: 20080908
  17. PANTOZOL [Concomitant]
     Dates: start: 20080807, end: 20080908
  18. PERENTEROL [Concomitant]
     Dates: start: 20080908, end: 20080908
  19. METHYLPREDNISOLONE 4MG TAB [Concomitant]
     Dates: start: 20080908, end: 20080908

REACTIONS (3)
  - BRONCHIAL CARCINOMA [None]
  - DISEASE PROGRESSION [None]
  - PULMONARY EMBOLISM [None]
